FAERS Safety Report 6742234-7 (Version None)
Quarter: 2010Q2

REPORT INFORMATION
  Report Type: 
  Country: None (occurrence: None)
  Receive Date: 20100526
  Receipt Date: 20100513
  Transmission Date: 20101027
  Serious: Yes (Hospitalization)
  Sender: FDA-Public Use
  Company Number: AU-SANOFI-AVENTIS-2010SA028524

PATIENT
  Age: 90 Year
  Sex: Female

DRUGS (7)
  1. LANTUS [Suspect]
     Route: 058
     Dates: start: 20091001
  2. DIAMICRON [Concomitant]
  3. AVAPRO [Concomitant]
  4. ASPIRIN [Concomitant]
  5. SIMVASTATIN [Concomitant]
  6. ENZYME INHIBITORS [Concomitant]
  7. CALCIUM CARBONATE [Concomitant]

REACTIONS (5)
  - BRADYCARDIA [None]
  - DIZZINESS [None]
  - FALL [None]
  - HICCUPS [None]
  - MYOCLONUS [None]
